FAERS Safety Report 10253142 (Version 1)
Quarter: 2014Q2

REPORT INFORMATION
  Report Type: Spontaneous
  Country: US (occurrence: None)
  Receive Date: 20140619
  Receipt Date: 20140619
  Transmission Date: 20141212
  Serious: No
  Sender: FDA-Public Use
  Company Number: None

PATIENT
  Sex: Female
  Weight: 54.43 kg

DRUGS (2)
  1. DEPO-PROVERA [Suspect]
     Indication: CONTRACEPTION
     Dosage: 150MG  Q 12-13WKS  IM
     Route: 030
     Dates: start: 20120501, end: 20140410
  2. DEPO-PROVERA [Suspect]
     Dosage: 150MG  Q 12-13WKS  IM
     Route: 030
     Dates: start: 20120501, end: 20140410

REACTIONS (1)
  - Pregnancy [None]
